FAERS Safety Report 6545473-3 (Version None)
Quarter: 2010Q1

REPORT INFORMATION
  Report Type: 
  Country: None (occurrence: None)
  Receive Date: 20100121
  Receipt Date: 20100114
  Transmission Date: 20100710
  Serious: Yes (Hospitalization)
  Sender: FDA-Public Use
  Company Number: US-ELI_LILLY_AND_COMPANY-US200912003616

PATIENT
  Sex: Female
  Weight: 82.54 kg

DRUGS (9)
  1. GEMCITABINE HCL [Suspect]
     Indication: OVARIAN CANCER RECURRENT
     Dosage: 1000 MG/M2, OTHER
     Route: 042
     Dates: start: 20090508
  2. CARBOPLATIN [Suspect]
     Indication: OVARIAN CANCER RECURRENT
     Dosage: 3 D/F, OTHER
     Route: 042
     Dates: start: 20090508
  3. BEVACIZUMAB [Suspect]
     Indication: OVARIAN CANCER RECURRENT
     Dosage: 10 MG/KG, OTHER
     Route: 042
     Dates: start: 20090508
  4. CELEXA [Concomitant]
     Dosage: 20 MG, DAILY (1/D)
  5. CALCIUM [Concomitant]
     Dosage: 500 MG, 3/D
  6. ACTONEL [Concomitant]
     Dosage: 150 MG, MONTHLY (1/M)
  7. ADVIL LIQUI-GELS [Concomitant]
     Dosage: UNK, AS NEEDED
  8. ALEVE (CAPLET) [Concomitant]
     Dosage: UNK, AS NEEDED
  9. M.V.I. [Concomitant]

REACTIONS (1)
  - PNEUMONIA [None]
